FAERS Safety Report 8236661-9 (Version None)
Quarter: 2012Q1

REPORT INFORMATION
  Report Type: 
  Country: None (occurrence: None)
  Receive Date: 20120309
  Receipt Date: 20110715
  Transmission Date: 20120608
  Serious: Yes (Other)
  Sender: FDA-Public Use
  Company Number: PHHY2011US09355

PATIENT
  Age: 61 Year
  Sex: Female

DRUGS (1)
  1. EXTAVIA [Suspect]
     Indication: MULTIPLE SCLEROSIS
     Dosage: 0.25 MG, QOD, SUBCUTANEOUS
     Route: 058
     Dates: start: 20110129

REACTIONS (6)
  - PYREXIA [None]
  - FATIGUE [None]
  - DEPRESSION [None]
  - TEMPERATURE INTOLERANCE [None]
  - MUSCULAR WEAKNESS [None]
  - RHINORRHOEA [None]
